FAERS Safety Report 10997604 (Version 3)
Quarter: 2015Q2

REPORT INFORMATION
  Report Type: Report from Study
  Country: PL (occurrence: PL)
  Receive Date: 20150408
  Receipt Date: 20150520
  Transmission Date: 20150821
  Serious: Yes (Death, Other)
  Sender: FDA-Public Use
  Company Number: PL-GLAXOSMITHKLINE-PL2015GSK037256

PATIENT
  Age: 80 Year
  Sex: Male
  Weight: 66 kg

DRUGS (8)
  1. IFOSFAMIDE. [Suspect]
     Active Substance: IFOSFAMIDE
     Indication: LYMPHOMA
     Dosage: 1500 MG, UNK
     Route: 042
  2. ETOPOSIDE. [Suspect]
     Active Substance: ETOPOSIDE
     Indication: LYMPHOMA
     Dosage: 80 MG, UNK
  3. OFATUMUMAB [Suspect]
     Active Substance: OFATUMUMAB
     Indication: LYMPHOMA
     Dosage: 1000 MG, UNK
     Route: 042
     Dates: start: 20150306
  4. CYTARABINE. [Suspect]
     Active Substance: CYTARABINE
     Indication: LYMPHOMA
     Dosage: 1500 MG, UNK
  5. NITROGLYCERIN. [Concomitant]
     Active Substance: NITROGLYCERIN
     Indication: CORONARY ARTERY INSUFFICIENCY
     Dosage: UNK, QD
     Route: 058
     Dates: start: 20150318, end: 20150318
  6. CAPTOPRIL. [Concomitant]
     Active Substance: CAPTOPRIL
     Indication: CORONARY ARTERY INSUFFICIENCY
     Dosage: 6.25 MG, QD
     Route: 058
     Dates: start: 20150318, end: 20150318
  7. MORPHINE [Concomitant]
     Active Substance: MORPHINE
     Indication: CORONARY ARTERY INSUFFICIENCY
     Dosage: 5 MG, QD
     Route: 058
     Dates: start: 20150318, end: 20150318
  8. METOPROLOL [Concomitant]
     Active Substance: METOPROLOL
     Indication: CORONARY ARTERY INSUFFICIENCY
     Dosage: 25 MG, BID
     Route: 048
     Dates: start: 20150318

REACTIONS (1)
  - Coronary artery insufficiency [Fatal]

NARRATIVE: CASE EVENT DATE: 20150318
